FAERS Safety Report 16719599 (Version 3)
Quarter: 2020Q1

REPORT INFORMATION
  Report Type: Spontaneous
  Country: IS (occurrence: IS)
  Receive Date: 20190820
  Receipt Date: 20200326
  Transmission Date: 20200409
  Serious: Yes (Hospitalization)
  Sender: FDA-Public Use
  Company Number: IS-TEVA-2019-IS-1095871

PATIENT
  Age: 67 Year
  Sex: Female

DRUGS (8)
  1. OXYCODONE [Suspect]
     Active Substance: OXYCODONE
     Indication: PAIN
     Dosage: 40 MILLIGRAM DAILY;
     Route: 048
  2. AMITRIPTYLINE [Concomitant]
     Active Substance: AMITRIPTYLINE
  3. VORICONAZOLE. [Interacting]
     Active Substance: VORICONAZOLE
     Indication: ASPERGILLUS INFECTION
     Dosage: 600 MILLIGRAM DAILY;
     Route: 042
  4. METOPROLOL. [Concomitant]
     Active Substance: METOPROLOL
  5. CLOPIDOGREL [Concomitant]
     Active Substance: CLOPIDOGREL BISULFATE
  6. DOXYCYCLINE. [Concomitant]
     Active Substance: DOXYCYCLINE
  7. ACETYLCYSTEIN [Concomitant]
     Active Substance: ACETYLCYSTEINE
  8. OMEPRAZOL [Concomitant]
     Active Substance: OMEPRAZOLE

REACTIONS (11)
  - Respiratory rate decreased [Recovering/Resolving]
  - Drug interaction [Recovering/Resolving]
  - Dysarthria [Recovering/Resolving]
  - Altered state of consciousness [Recovering/Resolving]
  - Toxicity to various agents [Recovering/Resolving]
  - Unresponsive to stimuli [Recovering/Resolving]
  - Overdose [Unknown]
  - Muscle twitching [Recovering/Resolving]
  - Sedation [Recovering/Resolving]
  - Blood pressure decreased [Recovering/Resolving]
  - Delirium [Recovering/Resolving]
